FAERS Safety Report 23571476 (Version 1)
Quarter: 2024Q1

REPORT INFORMATION
  Report Type: Spontaneous
  Country: US (occurrence: US)
  Receive Date: 20240227
  Receipt Date: 20240227
  Transmission Date: 20240410
  Serious: No
  Sender: FDA-Public Use
  Company Number: US-SLATERUN-2024SRSPO00012

PATIENT
  Age: 78 Year
  Sex: Female

DRUGS (3)
  1. DILTIAZEM HYDROCHLORIDE [Suspect]
     Active Substance: DILTIAZEM HYDROCHLORIDE
     Indication: Supraventricular tachycardia
     Dates: start: 20240126, end: 202402
  2. chelated magnesium [Concomitant]
     Indication: Supraventricular tachycardia
     Dosage: THE PATIENT WAS 200 OR 300 CHELATED MAGNESIUM A DAY
     Route: 065
  3. Herbal hawthorn extract [Concomitant]
     Indication: Supraventricular tachycardia
     Dosage: A DROP OR 02 DROPS OF HAWTHORN EXTRACT A DAY
     Route: 065

REACTIONS (5)
  - Illness [Recovered/Resolved]
  - Impaired work ability [Recovered/Resolved]
  - Flushing [Recovered/Resolved]
  - Asthenia [Recovered/Resolved]
  - Dizziness [Recovered/Resolved]
